FAERS Safety Report 5381807-3 (Version None)
Quarter: 2007Q3

REPORT INFORMATION
  Report Type: 
  Country: None (occurrence: None)
  Receive Date: 20070705
  Receipt Date: 20070705
  Transmission Date: 20080115
  Serious: Yes (Death)
  Sender: FDA-Public Use
  Company Number: None

PATIENT
  Sex: Male
  Weight: 83.4 kg

DRUGS (8)
  1. DEPOCYT [Suspect]
     Indication: METASTASES TO MENINGES
     Dosage: 50 MG ONCE IT
     Route: 038
     Dates: start: 20070629, end: 20070629
  2. ATENOLOL [Concomitant]
  3. DECADRON [Concomitant]
  4. LOTREL [Concomitant]
  5. CALCIUM CARBONATE [Concomitant]
  6. SENOKOT [Concomitant]
  7. MORPHINE [Concomitant]
  8. PERCOCET [Concomitant]

REACTIONS (1)
  - CONVULSION [None]
